FAERS Safety Report 9815673 (Version 1)
Quarter: 2014Q1

REPORT INFORMATION
  Report Type: Spontaneous
  Country: CH (occurrence: CH)
  Receive Date: 20140114
  Receipt Date: 20140114
  Transmission Date: 20141002
  Serious: Yes (Other)
  Sender: FDA-Public Use
  Company Number: CH-AMGEN-CHESP2014001644

PATIENT
  Age: 69 Year
  Sex: Female
  Weight: 73 kg

DRUGS (8)
  1. PROLIA [Suspect]
     Indication: OSTEOPOROSIS
     Dosage: 1 DF, 1 PER 1 TOTAL
     Route: 065
     Dates: start: 20131014
  2. BECOZYM                            /00228301/ [Concomitant]
  3. CALCIUM +D3 [Concomitant]
  4. CALCIUM +D                         /00944201/ [Concomitant]
  5. VITAMIN D                          /00107901/ [Concomitant]
  6. LOSARTAN [Concomitant]
     Indication: BLOOD PRESSURE INCREASED
     Dosage: 100 MG, UNK
  7. LOSARTAN + HIDROCLOROTIAZIDA [Concomitant]
     Indication: BLOOD PRESSURE INCREASED
  8. CRATAEGUS                          /01349301/ [Concomitant]
     Dosage: 5 DROPS, QD

REACTIONS (4)
  - Headache [Unknown]
  - Hypertension [Not Recovered/Not Resolved]
  - Nausea [Not Recovered/Not Resolved]
  - Eczema [Recovering/Resolving]
